FAERS Safety Report 6012183-0 (Version None)
Quarter: 2008Q4

REPORT INFORMATION
  Report Type: 
  Country: None (occurrence: None)
  Receive Date: 20081218
  Receipt Date: 20081029
  Transmission Date: 20090506
  Serious: No
  Sender: FDA-Public Use
  Company Number: US-ASTRAZENECA-2008UW24244

PATIENT
  Sex: Female

DRUGS (3)
  1. CRESTOR [Suspect]
     Route: 048
     Dates: start: 20081001
  2. METOPROLOL TARTRATE [Concomitant]
  3. TIAZAC [Concomitant]

REACTIONS (1)
  - SWELLING FACE [None]
